FAERS Safety Report 8505198-1 (Version None)
Quarter: 2012Q3

REPORT INFORMATION
  Report Type: 
  Country: None (occurrence: None)
  Receive Date: 20120712
  Receipt Date: 20120703
  Transmission Date: 20120928
  Serious: Yes (Hospitalization)
  Sender: FDA-Public Use
  Company Number: JP-VERTEX PHARMACEUTICALS INC.-AE-2012-007649

PATIENT
  Age: 56 Year
  Sex: Male

DRUGS (15)
  1. TELAVIC (TELAPREVIR) [Suspect]
     Indication: HEPATITIS C
     Route: 048
     Dates: start: 20120207, end: 20120430
  2. PEG-INTRON [Concomitant]
     Route: 058
     Dates: start: 20120323
  3. REBETOL [Concomitant]
     Indication: HEPATITIS C
     Route: 048
     Dates: start: 20120113, end: 20120419
  4. SELBEX [Concomitant]
     Route: 048
     Dates: start: 20120207
  5. BRANUTE [Concomitant]
     Route: 048
  6. LIVOSTIN [Concomitant]
     Route: 045
  7. PEG-INTRON [Concomitant]
     Route: 058
  8. REBETOL [Concomitant]
     Route: 048
     Dates: start: 20120420, end: 20120511
  9. HIRUDOID [Concomitant]
     Route: 061
  10. PEG-INTRON [Concomitant]
     Indication: HEPATITIS C
     Route: 058
     Dates: start: 20120113, end: 20120322
  11. ADOFEED [Concomitant]
     Route: 061
  12. POSTERISAN [Concomitant]
     Route: 061
  13. BRANUTE [Concomitant]
     Route: 048
     Dates: start: 20120302, end: 20120328
  14. ALLEGRA [Concomitant]
     Route: 048
  15. LOXOPROFEN [Concomitant]
     Route: 048
     Dates: start: 20120207

REACTIONS (2)
  - HEPATIC FUNCTION ABNORMAL [None]
  - ERYTHEMA [None]
